FAERS Safety Report 20345630 (Version 1)
Quarter: 2022Q1

REPORT INFORMATION
  Report Type: Spontaneous
  Country: US (occurrence: US)
  Receive Date: 20220118
  Receipt Date: 20220118
  Transmission Date: 20220423
  Serious: Yes (Hospitalization, Other)
  Sender: FDA-Public Use
  Company Number: US-BAYER-2022A003498

PATIENT
  Age: 87 Year
  Sex: Male
  Weight: 74.615 kg

DRUGS (23)
  1. XOFIGO [Suspect]
     Active Substance: RADIUM RA-223 DICHLORIDE
     Indication: Prostate cancer
     Dosage: UNK
     Dates: start: 20211020, end: 20211020
  2. XOFIGO [Suspect]
     Active Substance: RADIUM RA-223 DICHLORIDE
     Indication: Metastases to bone
     Dosage: UNK
     Dates: start: 20211117, end: 20211117
  3. CHOLECALCIFEROL [Concomitant]
     Active Substance: CHOLECALCIFEROL
     Dosage: UNK
  4. ACETAMINOPHEN\HYDROCODONE [Concomitant]
     Active Substance: ACETAMINOPHEN\HYDROCODONE
     Indication: Pain
     Dosage: 1 EA EVERY 4 HOURS AS NEEDED
     Route: 048
     Dates: end: 20211206
  5. ACETAMINOPHEN\HYDROCODONE [Concomitant]
     Active Substance: ACETAMINOPHEN\HYDROCODONE
     Indication: Pain
     Dosage: UNK
     Dates: end: 20211130
  6. VITAMIN D3 [Concomitant]
     Active Substance: CHOLECALCIFEROL
     Dosage: 2000 UNIT DAILY
     Route: 048
     Dates: end: 20211206
  7. VITAMIN D3 [Concomitant]
     Active Substance: CHOLECALCIFEROL
     Dosage: UNK
     Dates: start: 20211207
  8. QUETIAPINE [Concomitant]
     Active Substance: QUETIAPINE
     Dosage: 25 MG
     Route: 048
     Dates: end: 20211205
  9. QUETIAPINE [Concomitant]
     Active Substance: QUETIAPINE
     Dosage: UNK
     Dates: start: 20211206
  10. POLYETHYLENE GLYCOL 3350 [Concomitant]
     Active Substance: POLYETHYLENE GLYCOL 3350
     Dosage: 17 G, BID
     Route: 048
     Dates: end: 20211206
  11. DOCUSATE;SENNOSIDE A+B [Concomitant]
     Dosage: 2 TABLETS BID
     Route: 048
     Dates: end: 20211206
  12. ROZEREM [Concomitant]
     Active Substance: RAMELTEON
     Dosage: DAILY DOSE 8 MG
     Route: 048
     Dates: end: 20211205
  13. ROZEREM [Concomitant]
     Active Substance: RAMELTEON
     Dosage: UNK
     Dates: start: 20211206
  14. DICLOFENAC SODIUM [Concomitant]
     Active Substance: DICLOFENAC SODIUM
     Dosage: 4 APPLIC TOPICAL 3 TIMES DAILY
     Route: 061
     Dates: end: 20211206
  15. VITAMIN B12 [Concomitant]
     Active Substance: CYANOCOBALAMIN
     Dosage: 1000 MCG QWEEK 28 DAYS
     Route: 058
     Dates: start: 20211216, end: 20211216
  16. VITAMIN B12 [Concomitant]
     Active Substance: CYANOCOBALAMIN
     Dosage: 1000 MCG DAILY
     Route: 030
     Dates: start: 20211206, end: 20211206
  17. VITAMIN B12 [Concomitant]
     Active Substance: CYANOCOBALAMIN
     Dosage: UNK
     Dates: start: 20211207, end: 20211207
  18. MULTIVITAMIN [ASCORBIC ACID;BIOTIN;CALCIUM PANTOTHENATE;CYANOCOBAL [Concomitant]
     Dosage: 1 TAB DAILY
     Route: 048
     Dates: end: 20211206
  19. OMEPRAZOLE [Concomitant]
     Active Substance: OMEPRAZOLE
     Dosage: 20 MG DAILY
     Route: 048
     Dates: end: 20211206
  20. OMEPRAZOLE [Concomitant]
     Active Substance: OMEPRAZOLE
     Dosage: UNK
     Dates: start: 20211207
  21. LOVENOX [Concomitant]
     Active Substance: ENOXAPARIN SODIUM
     Indication: Thrombosis
     Dosage: 40MG/0.4 ML NIGHTLY 14 DAYS
     Route: 058
     Dates: start: 20211206, end: 20211206
  22. ASPIRIN [Concomitant]
     Active Substance: ASPIRIN
     Dosage: 81 MG, BID FOR 14 DAYS
  23. SODIUM PHOSPHATES [SODIUM PHOSPHATE DIBASIC;SODIUM PHOSPHATE MONOB [Concomitant]
     Dosage: 19-7 GRAM/118 ML
     Route: 054

REACTIONS (14)
  - Femoral neck fracture [None]
  - Hip fracture [None]
  - Fall [None]
  - Bone cancer metastatic [None]
  - Balance disorder [None]
  - Arthralgia [None]
  - Arthralgia [None]
  - Constipation [None]
  - Tachycardia [None]
  - Hypotension [None]
  - Pyrexia [None]
  - Anaemia [None]
  - Vitamin B12 deficiency [None]
  - Vitamin D deficiency [None]
